FAERS Safety Report 7693582-8 (Version None)
Quarter: 2011Q3

REPORT INFORMATION
  Report Type: 
  Country: None (occurrence: None)
  Receive Date: 20110819
  Receipt Date: 20110805
  Transmission Date: 20111222
  Serious: Yes (Hospitalization, Other)
  Sender: FDA-Public Use
  Company Number: PHHY2011ZA70934

PATIENT
  Age: 13 Year
  Sex: Male

DRUGS (2)
  1. RITALIN LA [Suspect]
     Dosage: 10 DF, ONCE/SINGLE
  2. RITALIN LA [Suspect]
     Dosage: 40 MG, UNK

REACTIONS (4)
  - INTENTIONAL OVERDOSE [None]
  - HEADACHE [None]
  - DELIRIUM [None]
  - SUICIDE ATTEMPT [None]
